FAERS Safety Report 9682461 (Version 2)
Quarter: 2014Q2

REPORT INFORMATION
  Report Type: Spontaneous
  Country: US (occurrence: US)
  Receive Date: 20131112
  Receipt Date: 20140414
  Transmission Date: 20141212
  Serious: Yes (Other)
  Sender: FDA-Public Use
  Company Number: US-JNJFOC-20131019761

PATIENT
  Sex: Female

DRUGS (8)
  1. ETHINYLESTRADIOL/NORETHINDRONE [Suspect]
     Indication: CONTRACEPTION
     Route: 048
  2. EZOGABINE [Suspect]
     Indication: PRODUCT USED FOR UNKNOWN INDICATION
     Route: 065
  3. EZOGABINE [Suspect]
     Indication: PRODUCT USED FOR UNKNOWN INDICATION
     Route: 065
  4. EZOGABINE [Suspect]
     Indication: PRODUCT USED FOR UNKNOWN INDICATION
     Route: 065
  5. EZOGABINE [Suspect]
     Indication: PRODUCT USED FOR UNKNOWN INDICATION
     Route: 065
  6. EZOGABINE [Suspect]
     Indication: PRODUCT USED FOR UNKNOWN INDICATION
     Route: 065
  7. EZOGABINE [Suspect]
     Indication: PRODUCT USED FOR UNKNOWN INDICATION
     Route: 065
  8. PLACEBO [Suspect]
     Indication: CONTRACEPTION
     Route: 048

REACTIONS (27)
  - Aphasia [Unknown]
  - Hallucination [Unknown]
  - Confusional state [Unknown]
  - Asthenia [Unknown]
  - Respiratory disorder [Unknown]
  - Constipation [Unknown]
  - Hepatic enzyme increased [Unknown]
  - Panic reaction [Unknown]
  - Rash [Unknown]
  - Dizziness [Unknown]
  - Headache [Unknown]
  - Hypoaesthesia [Unknown]
  - Somnolence [Unknown]
  - Disturbance in attention [Unknown]
  - Nausea [Unknown]
  - Abdominal pain [Unknown]
  - Dry mouth [Unknown]
  - Euphoric mood [Unknown]
  - Muscle spasms [Unknown]
  - Pain in extremity [Unknown]
  - Feeling cold [Unknown]
  - Fatigue [Unknown]
  - Vision blurred [Unknown]
  - Mediastinal disorder [Unknown]
  - Chest pain [Unknown]
  - Skin disorder [Unknown]
  - Dysmenorrhoea [Unknown]
